FAERS Safety Report 7254475-3 (Version None)
Quarter: 2011Q1

REPORT INFORMATION
  Report Type: 
  Country: None (occurrence: None)
  Receive Date: 20110129
  Receipt Date: 20100428
  Transmission Date: 20110831
  Serious: No
  Sender: FDA-Public Use
  Company Number: US-ABBOTT-10P-163-0641121-00

PATIENT
  Sex: Female
  Weight: 65.83 kg

DRUGS (3)
  1. HUMIRA [Suspect]
     Dosage: DAY 1
     Dates: start: 20100329, end: 20100329
  2. CYCLOSPORINE [Concomitant]
     Indication: PRODUCT USED FOR UNKNOWN INDICATION
     Dosage: WEANING DOSING
  3. HUMIRA [Suspect]
     Indication: PSORIASIS
     Dates: start: 20100419

REACTIONS (4)
  - INJECTION SITE PAIN [None]
  - DRY THROAT [None]
  - TENSION HEADACHE [None]
  - THROAT TIGHTNESS [None]
